FAERS Safety Report 16141153 (Version 2)
Quarter: 2019Q2

REPORT INFORMATION
  Report Type: Spontaneous
  Country: VN (occurrence: VN)
  Receive Date: 20190401
  Receipt Date: 20190430
  Transmission Date: 20190711
  Serious: Yes (Hospitalization)
  Sender: FDA-Public Use
  Company Number: PHHY2019VN069672

PATIENT
  Age: 34 Year
  Sex: Female
  Weight: 44 kg

DRUGS (1)
  1. VOLTAREN [Suspect]
     Active Substance: DICLOFENAC SODIUM
     Indication: URINARY TRACT INFECTION
     Dosage: 1 DF, QD
     Route: 030
     Dates: start: 20190318, end: 20190318

REACTIONS (6)
  - Product use in unapproved indication [Unknown]
  - Eye oedema [Recovered/Resolved]
  - Anaphylactic reaction [Recovered/Resolved]
  - Nasal congestion [Recovered/Resolved]
  - Eye pruritus [Recovered/Resolved]
  - Dyspnoea [Recovered/Resolved]

NARRATIVE: CASE EVENT DATE: 20190318
